FAERS Safety Report 6816433-X (Version None)
Quarter: 2010Q3

REPORT INFORMATION
  Report Type: 
  Country: None (occurrence: None)
  Receive Date: 20100705
  Receipt Date: 20100701
  Transmission Date: 20110219
  Serious: Yes (Disabling)
  Sender: FDA-Public Use
  Company Number: FR-BRISTOL-MYERS SQUIBB COMPANY-15133150

PATIENT
  Age: 30 Year
  Sex: Male

DRUGS (5)
  1. ABILIFY [Suspect]
     Indication: SCHIZOPHRENIA
     Dosage: TAB 5 MG/D STARTED IN JUN10
     Route: 048
     Dates: start: 20090601
  2. MIANSERIN [Concomitant]
     Indication: INSOMNIA
     Dosage: TAB; SINCE 1.5MONTH
     Route: 048
  3. ZYPREXA [Concomitant]
     Indication: SCHIZOPHRENIA
     Dosage: TABLET
     Route: 048
  4. SOLIAN [Concomitant]
     Indication: SCHIZOPHRENIA
     Dosage: TAB
     Route: 048
  5. RISPERDAL [Concomitant]
     Indication: SCHIZOPHRENIA
     Route: 048
     Dates: start: 20010101, end: 20090101

REACTIONS (1)
  - ARTHRITIS [None]
